FAERS Safety Report 7778163-X (Version None)
Quarter: 2011Q3

REPORT INFORMATION
  Report Type: 
  Country: None (occurrence: None)
  Receive Date: 20110926
  Receipt Date: 20110922
  Transmission Date: 20111222
  Serious: Yes (Other)
  Sender: FDA-Public Use
  Company Number: KP-ROXANE LABORATORIES, INC.-2011-RO-01329RO

PATIENT
  Age: 55 Year
  Sex: Male

DRUGS (3)
  1. STEROID [Suspect]
     Indication: KERATITIS HERPETIC
     Dosage: 30 MG
  2. MYCOPHENOLATE MOFETIL [Suspect]
     Indication: KERATITIS HERPETIC
     Dosage: 2000 MG
  3. ACYCLOVIR [Suspect]
     Indication: KERATITIS HERPETIC
     Dosage: 800 MG

REACTIONS (2)
  - GRAND MAL CONVULSION [None]
  - LOSS OF CONSCIOUSNESS [None]
